FAERS Safety Report 20841691 (Version 1)
Quarter: 2022Q2

REPORT INFORMATION
  Report Type: Spontaneous
  Country: US (occurrence: US)
  Receive Date: 20220518
  Receipt Date: 20220518
  Transmission Date: 20220721
  Serious: Yes (Other)
  Sender: FDA-Public Use
  Company Number: US-NOVARTISPH-NVSC2022US110868

PATIENT
  Age: 33 Year
  Sex: Male

DRUGS (2)
  1. CARBOPLATIN [Suspect]
     Active Substance: CARBOPLATIN
     Indication: NUT midline carcinoma
     Dosage: TWO ROUNDS
     Route: 065
  2. ETOPOSIDE [Suspect]
     Active Substance: ETOPOSIDE
     Indication: NUT midline carcinoma
     Dosage: TWO ROUNDS
     Route: 065

REACTIONS (4)
  - Tumour lysis syndrome [Unknown]
  - Hepatic failure [Unknown]
  - Condition aggravated [Unknown]
  - Product use in unapproved indication [Unknown]
